FAERS Safety Report 24768229 (Version 1)
Quarter: 2024Q4

REPORT INFORMATION
  Report Type: Report from Study
  Country: DE (occurrence: DE)
  Receive Date: 20241223
  Receipt Date: 20241223
  Transmission Date: 20250115
  Serious: Yes (Other)
  Sender: ABBVIE
  Company Number: DE-ABBVIE-6058508

PATIENT
  Age: 71 Year
  Sex: Male

DRUGS (1)
  1. FOSCARBIDOPA\FOSLEVODOPA [Suspect]
     Active Substance: FOSCARBIDOPA\FOSLEVODOPA
     Indication: Parkinson^s disease
     Dosage: DOSAGE: SD: 1.0 ML; CRN: 0.30 ML/H; CR: 0.45 ML/H, CRH: 0.45 ML/H, ED: 0.20 ML
     Route: 058
     Dates: start: 20240308

REACTIONS (4)
  - Skin cancer [Unknown]
  - Fall [Recovering/Resolving]
  - Infusion site inflammation [Unknown]
  - Haemorrhage [Recovering/Resolving]

NARRATIVE: CASE EVENT DATE: 20240101
